FAERS Safety Report 15498926 (Version 1)
Quarter: 2018Q4

REPORT INFORMATION
  Report Type: Spontaneous
  Country: US (occurrence: US)
  Receive Date: 20181005
  Receipt Date: 20181005
  Transmission Date: 20190205
  Serious: Yes (Other)
  Sender: FDA-Public Use
  Company Number: None

PATIENT
  Age: 48 Year
  Sex: Female
  Weight: 121.5 kg

DRUGS (20)
  1. REXULTI [Suspect]
     Active Substance: BREXPIPRAZOLE
     Indication: MAJOR DEPRESSION
     Dosage: ?          QUANTITY:30 TABLET(S);?
     Route: 048
  2. VITAMIN D3 [Concomitant]
     Active Substance: CHOLECALCIFEROL
  3. LOTRINEX [Concomitant]
  4. LOMOTIL [Concomitant]
     Active Substance: ATROPINE SULFATE\DIPHENOXYLATE HYDROCHLORIDE
  5. KENOLOG CREAM [Concomitant]
  6. NORCO [Concomitant]
     Active Substance: ACETAMINOPHEN\HYDROCODONE BITARTRATE
  7. SYNTHROID [Concomitant]
     Active Substance: LEVOTHYROXINE SODIUM
  8. DETROL LA [Concomitant]
     Active Substance: TOLTERODINE TARTRATE
  9. IRON [Concomitant]
     Active Substance: IRON
  10. SKELAXIN [Concomitant]
     Active Substance: METAXALONE
  11. METFORMIN [Concomitant]
     Active Substance: METFORMIN HYDROCHLORIDE
  12. PROTONIX [Concomitant]
     Active Substance: PANTOPRAZOLE SODIUM
  13. REMERON [Concomitant]
     Active Substance: MIRTAZAPINE
  14. WARFARIN [Concomitant]
     Active Substance: WARFARIN
  15. PHENERGAN [Concomitant]
     Active Substance: PROMETHAZINE HYDROCHLORIDE
  16. ZOLOFT [Concomitant]
     Active Substance: SERTRALINE HYDROCHLORIDE
  17. COZAAR [Concomitant]
     Active Substance: LOSARTAN POTASSIUM
  18. LITHIUM. [Concomitant]
     Active Substance: LITHIUM
  19. ZOFRAN [Concomitant]
     Active Substance: ONDANSETRON HYDROCHLORIDE
  20. BENTYL [Concomitant]
     Active Substance: DICYCLOMINE HYDROCHLORIDE

REACTIONS (4)
  - Blood pressure increased [None]
  - Anxiety [None]
  - Type 2 diabetes mellitus [None]
  - Heart rate irregular [None]

NARRATIVE: CASE EVENT DATE: 20180924
